FAERS Safety Report 13694199 (Version 1)
Quarter: 2017Q2

REPORT INFORMATION
  Report Type: Spontaneous
  Country: US (occurrence: US)
  Receive Date: 20170627
  Receipt Date: 20170627
  Transmission Date: 20170830
  Serious: Yes (Life-Threatening, Hospitalization, Disabling)
  Sender: FDA-Public Use
  Company Number: None

PATIENT
  Age: 31 Year
  Sex: Female
  Weight: 71.55 kg

DRUGS (1)
  1. CLONAZEPAM. [Suspect]
     Active Substance: CLONAZEPAM
     Indication: INSOMNIA
     Dosage: ?          QUANTITY:1 TABLET(S);?AT BEDTIME ORAL
     Route: 048

REACTIONS (16)
  - Migraine [None]
  - Apathy [None]
  - Nausea [None]
  - Feeling abnormal [None]
  - Eating disorder [None]
  - Withdrawal syndrome [None]
  - Night sweats [None]
  - Tinnitus [None]
  - Confusional state [None]
  - Hyperhidrosis [None]
  - Tremor [None]
  - Fatigue [None]
  - Insomnia [None]
  - Skin hypopigmentation [None]
  - Memory impairment [None]
  - Nightmare [None]

NARRATIVE: CASE EVENT DATE: 20140215
